FAERS Safety Report 5599745-X (Version None)
Quarter: 2008Q1

REPORT INFORMATION
  Report Type: 
  Country: None (occurrence: None)
  Receive Date: 20080123
  Receipt Date: 20080116
  Transmission Date: 20080703
  Serious: Yes (Other)
  Sender: FDA-Public Use
  Company Number: US-BRISTOL-MYERS SQUIBB COMPANY-14043418

PATIENT
  Age: 54 Year
  Sex: Female
  Weight: 46 kg

DRUGS (7)
  1. ORENCIA [Suspect]
     Dosage: STARTED IN 01/2007 OR 02/2007
     Route: 042
     Dates: start: 20070101
  2. XANAX [Concomitant]
  3. HYDROCODONE [Concomitant]
  4. VITAMIN D [Concomitant]
     Route: 048
  5. CALCIUM GLUCONATE [Concomitant]
     Route: 048
  6. VITAMIN B COMPLEX CAP [Concomitant]
  7. ASPIRIN [Concomitant]
     Route: 048

REACTIONS (7)
  - ANOREXIA [None]
  - CHRONIC OBSTRUCTIVE PULMONARY DISEASE [None]
  - HERPES ZOSTER [None]
  - JOINT SWELLING [None]
  - PLEURAL FIBROSIS [None]
  - RASH [None]
  - WEIGHT DECREASED [None]
